FAERS Safety Report 8683847 (Version 3)
Quarter: 2012Q4

REPORT INFORMATION
  Report Type: 
  Country: US (occurrence: US)
  Receive Date: 20120726
  Receipt Date: 20121106
  Transmission Date: 20130627
  Serious: Yes (Hospitalization, Other)
  Sender: FDA-Public Use
  Company Number: US-PFIZER INC-2012179265

PATIENT
  Age: 56 Year
  Sex: Female
  Weight: 68.03 kg

DRUGS (8)
  1. LYRICA [Suspect]
     Indication: FIBROMYALGIA
     Dosage: 200 mg, 2x/day
     Route: 048
     Dates: start: 2009
  2. LYRICA [Suspect]
     Dosage: 100 mg, 3x/day
     Route: 048
     Dates: start: 2010, end: 201109
  3. LYRICA [Suspect]
     Dosage: 200 mg, 3x/day
     Route: 048
     Dates: end: 2012
  4. LYRICA [Suspect]
     Dosage: 200 mg, 3x/day
     Route: 048
     Dates: start: 2012
  5. HYDROCODONE [Concomitant]
     Indication: ARTHRITIS
     Dosage: UNK, as needed
  6. CALCIUM [Concomitant]
     Dosage: 500 mg, 2x/day
  7. TOPAMAX [Concomitant]
     Dosage: 300 mg, 1x/day
  8. PRISTIQ [Concomitant]
     Dosage: 100 mg, UNK

REACTIONS (8)
  - Breast cancer [Unknown]
  - Fall [Unknown]
  - Lower limb fracture [Unknown]
  - Gait disturbance [Unknown]
  - Pain [Unknown]
  - Limb discomfort [Unknown]
  - Arthropathy [Unknown]
  - Haemoglobin decreased [Unknown]
